FAERS Safety Report 14999119 (Version 1)
Quarter: 2018Q2

REPORT INFORMATION
  Report Type: Spontaneous
  Country: US (occurrence: US)
  Receive Date: 20180612
  Receipt Date: 20180612
  Transmission Date: 20180711
  Serious: Yes (Hospitalization, Other)
  Sender: FDA-Public Use
  Company Number: US-APOTEX-2018AP015739

PATIENT
  Age: 40 Year
  Sex: Female

DRUGS (2)
  1. PREDNISONE. [Suspect]
     Active Substance: PREDNISONE
     Indication: LUPUS NEPHRITIS
     Dosage: 20 MG, DAILY
     Route: 065
  2. MYCOPHENOLATE [Suspect]
     Active Substance: MYCOPHENOLIC ACID
     Indication: LUPUS NEPHRITIS
     Dosage: 500 MG, TID
     Route: 065

REACTIONS (5)
  - Meningitis tuberculous [Unknown]
  - Acute sinusitis [Unknown]
  - Epstein-Barr virus antibody positive [Unknown]
  - Disseminated tuberculosis [Unknown]
  - Sinusitis bacterial [Unknown]
